FAERS Safety Report 19503210 (Version 1)
Quarter: 2021Q3

REPORT INFORMATION
  Report Type: Spontaneous
  Country: US (occurrence: US)
  Receive Date: 20210707
  Receipt Date: 20210707
  Transmission Date: 20211014
  Serious: Yes (Other)
  Sender: FDA-Public Use
  Company Number: US-AMGEN-USASP2021102023

PATIENT
  Sex: Male

DRUGS (6)
  1. LENVATINIB [Concomitant]
     Active Substance: LENVATINIB
  2. LEUCOVORINE [Concomitant]
     Active Substance: LEUCOVORIN
     Dosage: UNK
     Dates: start: 202001
  3. ATEZOLIZUMAB. [Concomitant]
     Active Substance: ATEZOLIZUMAB
     Dosage: UNK UNK, Q3WK
     Dates: start: 202009
  4. NIVOLUMAB [Concomitant]
     Active Substance: NIVOLUMAB
  5. BEVACIZUMAB. [Suspect]
     Active Substance: BEVACIZUMAB
     Indication: HEPATOCELLULAR CARCINOMA
     Dosage: UNK, Q3WK
     Route: 065
     Dates: start: 202009
  6. FLUOROURACIL 5 [Concomitant]
     Dosage: UNK
     Dates: start: 202001

REACTIONS (5)
  - Rash [Unknown]
  - Arthritis [Unknown]
  - Off label use [Unknown]
  - Hepatocellular carcinoma [Unknown]
  - Therapy partial responder [Unknown]

NARRATIVE: CASE EVENT DATE: 202009
